FAERS Safety Report 4853834-3 (Version None)
Quarter: 2005Q4

REPORT INFORMATION
  Report Type: 
  Country: None (occurrence: None)
  Receive Date: 20051213
  Receipt Date: 20051207
  Transmission Date: 20060501
  Serious: Yes (Hospitalization)
  Sender: FDA-Public Use
  Company Number: 2005BI016092

PATIENT
  Age: 37 Year
  Sex: Female

DRUGS (5)
  1. AVONEX [Suspect]
     Indication: MULTIPLE SCLEROSIS
     Dosage: 30 UG QW IM
     Route: 030
     Dates: start: 20050729
  2. CLONAZEPAM [Concomitant]
  3. MIRALAX [Concomitant]
  4. NEURONTIN [Concomitant]
  5. MULTI-VITAMIN [Concomitant]

REACTIONS (1)
  - MYOCARDIAL INFARCTION [None]
